FAERS Safety Report 8287516-5 (Version None)
Quarter: 2012Q2

REPORT INFORMATION
  Report Type: 
  Country: None (occurrence: None)
  Receive Date: 20120411
  Receipt Date: 20120327
  Transmission Date: 20120825
  Serious: No
  Sender: FDA-Public Use
  Company Number: B0791281A

PATIENT
  Age: 31 Year
  Sex: Female
  Weight: 53.8873 kg

DRUGS (14)
  1. TPN [Concomitant]
  2. SODIUM CHLORIDE [Concomitant]
  3. MULTI-VITAMIN [Concomitant]
  4. PANCREATIN TRIPLE STRENGTH CAP [Concomitant]
  5. TOHRAMYCIN [Concomitant]
  6. FEMODENE [Concomitant]
  7. ADCAL-D3 [Concomitant]
  8. ALENDRONATE SODIUM [Concomitant]
  9. CEFTAZIDIME SODIUM [Suspect]
     Indication: CYSTIC FIBROSIS
     Dosage: 2 GRAM (S), INTRAVENOUS BOLUS
     Route: 040
     Dates: start: 20110601, end: 20110601
  10. FERROUS FUMARATE [Concomitant]
  11. SALBUTAMOL SULPHATE FL.UTICASONE+SALMETEROL [Concomitant]
  12. AZITHROMYCIN [Concomitant]
  13. PULMOZYME [Concomitant]
  14. VITAMIN B COMPLEX CAP [Concomitant]

REACTIONS (1)
  - HYPERSENSITIVITY [None]
